FAERS Safety Report 6004407-0 (Version None)
Quarter: 2008Q4

REPORT INFORMATION
  Report Type: 
  Country: None (occurrence: None)
  Receive Date: 20081216
  Receipt Date: 20080123
  Transmission Date: 20090506
  Serious: No
  Sender: FDA-Public Use
  Company Number: US-AMGEN-KDL260707

PATIENT
  Sex: Female
  Weight: 111.7 kg

DRUGS (2)
  1. ENBREL [Suspect]
     Indication: RHEUMATOID ARTHRITIS
     Route: 058
     Dates: start: 20060118, end: 20071114
  2. METHOTREXATE [Concomitant]

REACTIONS (1)
  - NEUTROPENIA [None]
